FAERS Safety Report 18726645 (Version 3)
Quarter: 2021Q1

REPORT INFORMATION
  Report Type: Report from Study
  Country: US (occurrence: US)
  Receive Date: 20210111
  Receipt Date: 20210125
  Transmission Date: 20210419
  Serious: Yes (Hospitalization, Other)
  Sender: FDA-Public Use
  Company Number: US-JNJFOC-20201237441

PATIENT
  Age: 68 Year
  Sex: Male
  Weight: 118.04 kg

DRUGS (4)
  1. MACITENTAN [Suspect]
     Active Substance: MACITENTAN
     Indication: PULMONARY ARTERIAL HYPERTENSION
     Route: 048
  2. UPTRAVI [Suspect]
     Active Substance: SELEXIPAG
     Indication: PULMONARY ARTERIAL HYPERTENSION
     Route: 048
     Dates: end: 20201226
  3. UPTRAVI [Suspect]
     Active Substance: SELEXIPAG
     Route: 048
  4. SILDENAFIL CITRATE. [Concomitant]
     Active Substance: SILDENAFIL CITRATE

REACTIONS (6)
  - Rectal haemorrhage [Unknown]
  - Pain in jaw [Unknown]
  - Fall [Unknown]
  - Headache [Unknown]
  - Hypotension [Unknown]
  - Dyspnoea [Unknown]

NARRATIVE: CASE EVENT DATE: 20201226
